FAERS Safety Report 5964208-6 (Version None)
Quarter: 2008Q4

REPORT INFORMATION
  Report Type: 
  Country: None (occurrence: None)
  Receive Date: 20081124
  Receipt Date: 20081119
  Transmission Date: 20090506
  Serious: Yes (Death)
  Sender: FDA-Public Use
  Company Number: US-GILEAD-2008-0018676

PATIENT
  Sex: Male
  Weight: 95.34 kg

DRUGS (19)
  1. LETAIRIS [Suspect]
     Route: 048
     Dates: start: 20080904, end: 20080916
  2. COREG [Concomitant]
  3. DIGITEK [Concomitant]
  4. LOTENSIN [Concomitant]
  5. SINGULAIR [Concomitant]
  6. BUMEX [Concomitant]
  7. BACTRIM DS [Concomitant]
  8. FOSAMAX [Concomitant]
  9. PREDNISONE TAB [Concomitant]
  10. GLIMEPIRIDE [Concomitant]
  11. WARFARIN SODIUM [Concomitant]
  12. OXYCODONE AND ACETAMINOPHEN [Concomitant]
  13. OXYCONTIN [Concomitant]
  14. PREVACID [Concomitant]
  15. POTASSIUM CHLORIDE [Concomitant]
  16. FERROUS SULFATE [Concomitant]
  17. COENZYME Q10 [Concomitant]
  18. CALCIUM [Concomitant]
  19. MULTI-VITAMIN [Concomitant]

REACTIONS (3)
  - DEATH [None]
  - FLUID RETENTION [None]
  - RESPIRATORY DISTRESS [None]
